FAERS Safety Report 16471833 (Version 5)
Quarter: 2019Q3

REPORT INFORMATION
  Report Type: Spontaneous
  Country: GR (occurrence: GR)
  Receive Date: 20190624
  Receipt Date: 20190919
  Transmission Date: 20191004
  Serious: Yes (Other)
  Sender: FDA-Public Use
  Company Number: GR-CELLTRION INC.-2019GR022143

PATIENT

DRUGS (4)
  1. INFLECTRA [Suspect]
     Active Substance: INFLIXIMAB-DYYB
     Indication: COLITIS ULCERATIVE
     Dosage: UNK (3 BOTTLES EVERY 8 WEEKS)
     Route: 042
  2. MEZAVANT [Concomitant]
     Active Substance: MESALAMINE
     Dosage: 2 DF, DAILY
  3. INFLECTRA [Suspect]
     Active Substance: INFLIXIMAB-DYYB
     Dosage: UNK ( 2 INFUSIONS PER 6 WEEKS WERE PERFORMED ON 06JUL AND 25JUL)
  4. INFLECTRA [Suspect]
     Active Substance: INFLIXIMAB-DYYB
     Dosage: UNK ( 2 INFUSIONS PER 6 WEEKS WERE PERFORMED ON 06JUL AND 25JUL)

REACTIONS (10)
  - Discomfort [Not Recovered/Not Resolved]
  - Pain [Not Recovered/Not Resolved]
  - Colitis ulcerative [Unknown]
  - Vitiligo [Not Recovered/Not Resolved]
  - Condition aggravated [Not Recovered/Not Resolved]
  - Rash papular [Recovered/Resolved]
  - Drug ineffective [Unknown]
  - Mucous stools [Not Recovered/Not Resolved]
  - Stress [Not Recovered/Not Resolved]
  - Off label use [Unknown]

NARRATIVE: CASE EVENT DATE: 201712
